FAERS Safety Report 7367185-9 (Version None)
Quarter: 2011Q1

REPORT INFORMATION
  Report Type: 
  Country: None (occurrence: None)
  Receive Date: 20110322
  Receipt Date: 20110309
  Transmission Date: 20110831
  Serious: Yes (Hospitalization)
  Sender: FDA-Public Use
  Company Number: US-JNJFOC-20100904560

PATIENT
  Sex: Female
  Weight: 29.1 kg

DRUGS (5)
  1. INFLIXIMAB, RECOMBINANT [Suspect]
     Route: 042
  2. MERCAPTOPURINE [Concomitant]
  3. CIMZIA [Concomitant]
  4. NUTROPIN [Concomitant]
  5. INFLIXIMAB, RECOMBINANT [Suspect]
     Indication: CROHN'S DISEASE
     Route: 042

REACTIONS (3)
  - PYREXIA [None]
  - H1N1 INFLUENZA [None]
  - CULTURE URINE POSITIVE [None]
